FAERS Safety Report 7303557-6 (Version None)
Quarter: 2011Q1

REPORT INFORMATION
  Report Type: 
  Country: None (occurrence: None)
  Receive Date: 20110221
  Receipt Date: 20110217
  Transmission Date: 20110831
  Serious: Yes (Death, Hospitalization)
  Sender: FDA-Public Use
  Company Number: PHHY2010BR68684

PATIENT
  Sex: Female

DRUGS (6)
  1. AMIODARONE HYDROCHLORIDE [Concomitant]
     Indication: ATRIAL FIBRILLATION
     Dosage: 200 MG, QD
     Route: 048
     Dates: start: 20091101
  2. SIFROL [Concomitant]
     Indication: PARKINSON'S DISEASE
     Dosage: 1 MG, BID
     Route: 048
  3. VENALOT (TROXERUTIN/COUMARIN) [Concomitant]
     Dosage: 15 MG, QD
     Route: 048
  4. PURAN T4 [Concomitant]
     Indication: HYPOTHYROIDISM
     Dosage: 25 UG, QD
     Route: 048
  5. DIOVAN [Suspect]
     Indication: HYPERTENSION
     Dosage: 80 MG, QD
  6. RIVOTRIL [Concomitant]
     Indication: SOMNOLENCE
     Dosage: 2 MG, QD
     Route: 048

REACTIONS (5)
  - ATRIAL FIBRILLATION [None]
  - ARRHYTHMIA [None]
  - PARKINSON'S DISEASE [None]
  - MULTI-ORGAN FAILURE [None]
  - CONGESTIVE CARDIOMYOPATHY [None]
